FAERS Safety Report 25087205 (Version 1)
Quarter: 2025Q1

REPORT INFORMATION
  Report Type: Spontaneous
  Country: FR (occurrence: FR)
  Receive Date: 20250318
  Receipt Date: 20250318
  Transmission Date: 20250409
  Serious: Yes (Hospitalization)
  Sender: CELLTRION
  Company Number: None

PATIENT

DRUGS (2)
  1. INFLIXIMAB [Suspect]
     Active Substance: INFLIXIMAB
     Indication: Central nervous system inflammation
     Route: 042
     Dates: start: 20240325, end: 20240608
  2. PREDNISONE [Suspect]
     Active Substance: PREDNISONE
     Indication: Central nervous system inflammation
     Route: 048
     Dates: start: 20230504

REACTIONS (2)
  - Hepatic steatosis [Recovering/Resolving]
  - Intentional product use issue [Unknown]

NARRATIVE: CASE EVENT DATE: 20240517
